FAERS Safety Report 7263671-0 (Version None)
Quarter: 2011Q1

REPORT INFORMATION
  Report Type: 
  Country: None (occurrence: None)
  Receive Date: 20110130
  Receipt Date: 20101204
  Transmission Date: 20110831
  Serious: No
  Sender: FDA-Public Use
  Company Number: US-ABBOTT-10P-163-0689747-00

PATIENT
  Age: 58 Year
  Sex: Female

DRUGS (4)
  1. UNKNOWN MEDICATION [Concomitant]
     Indication: PSORIASIS
     Dosage: DAILY
  2. HUMIRA [Suspect]
     Indication: PSORIATIC ARTHROPATHY
     Dosage: 80MG LOADING DOSE
     Dates: start: 20101203
  3. UNKNOWN INHALER [Concomitant]
  4. UNKNOWN INHALER [Concomitant]
     Indication: ASTHMA

REACTIONS (6)
  - FATIGUE [None]
  - NAUSEA [None]
  - CHILLS [None]
  - DIARRHOEA [None]
  - PYREXIA [None]
  - VOMITING [None]
